FAERS Safety Report 6181438-1 (Version None)
Quarter: 2009Q2

REPORT INFORMATION
  Report Type: 
  Country: None (occurrence: None)
  Receive Date: 20090506
  Receipt Date: 20090505
  Transmission Date: 20091009
  Serious: Yes (Life-Threatening)
  Sender: FDA-Public Use
  Company Number: US-B.I. PHARMACEUTICALS,INC./RIDGEFIELD-2009-BP-05065BP

PATIENT
  Sex: Female

DRUGS (15)
  1. COMBIVENT [Suspect]
     Indication: CHRONIC OBSTRUCTIVE PULMONARY DISEASE
     Dosage: 8PUF
     Route: 055
     Dates: start: 20090120, end: 20090120
  2. COMBIVENT [Suspect]
     Indication: ASTHMA
  3. COMBIVENT [Suspect]
     Indication: BRONCHITIS
  4. CHEMOTHERAPY [Concomitant]
     Indication: LUNG NEOPLASM MALIGNANT
     Dates: start: 20080101, end: 20080101
  5. LEVOTHYROXINE SODIUM [Concomitant]
     Indication: THYROID DISORDER
     Dates: start: 20080101
  6. POTASSIUM CHLORIDE [Concomitant]
     Indication: CARDIAC FAILURE
     Dates: start: 20080101
  7. LASIX [Concomitant]
     Indication: CARDIAC FAILURE
     Dates: start: 20080101
  8. CARVEDILOL [Concomitant]
     Indication: CARDIAC FAILURE
     Dates: start: 20080101
  9. SPIRONOLACTONE [Concomitant]
     Indication: CARDIAC FAILURE
     Dates: start: 20080101
  10. METFORMIN HCL [Concomitant]
     Indication: DIABETES MELLITUS
     Dates: start: 19950101
  11. FERROUS SULFATE TAB [Concomitant]
     Indication: BLOOD IRON DECREASED
     Dates: start: 20080301
  12. ASCORBIC ACID [Concomitant]
     Indication: PROPHYLAXIS
     Dates: start: 20080301
  13. VITAMIN B COMPLEX CAP [Concomitant]
     Indication: PROPHYLAXIS
     Dates: start: 20080301
  14. PANTOPRAZOLE SODIUM [Concomitant]
  15. COUMADIN [Concomitant]

REACTIONS (2)
  - ABDOMINAL DISCOMFORT [None]
  - PULMONARY EMBOLISM [None]
